FAERS Safety Report 8262568-7 (Version None)
Quarter: 2012Q2

REPORT INFORMATION
  Report Type: 
  Country: None (occurrence: None)
  Receive Date: 20120405
  Receipt Date: 20120404
  Transmission Date: 20120825
  Serious: Yes (Other)
  Sender: FDA-Public Use
  Company Number: US-PFIZER INC-2012065394

PATIENT
  Sex: Female
  Weight: 68.027 kg

DRUGS (2)
  1. CHANTIX [Suspect]
     Indication: SMOKING CESSATION THERAPY
     Dosage: 0.5 MG, 1X/DAY
     Route: 048
     Dates: start: 20120201
  2. CHANTIX [Suspect]
     Dosage: 1 MG, 2X/DAY
     Route: 048
     Dates: end: 20120201

REACTIONS (7)
  - GRIEF REACTION [None]
  - DYSPNOEA [None]
  - WEIGHT INCREASED [None]
  - HEADACHE [None]
  - SWELLING [None]
  - MEMORY IMPAIRMENT [None]
  - MIGRAINE [None]
